FAERS Safety Report 7374504 (Version 2)
Quarter: 2014Q2

REPORT INFORMATION
  Report Type: Spontaneous
  Country: US (occurrence: US)
  Receive Date: 20100503
  Receipt Date: 20140622
  Transmission Date: 20141212
  Serious: No
  Sender: FDA-Public Use
  Company Number: US-ASTRAZENECA-2009SE17686

PATIENT
  Age: 66 Year
  Sex: Female

DRUGS (4)
  1. NEXIUM [Suspect]
     Indication: GASTROOESOPHAGEAL REFLUX DISEASE
     Route: 048
     Dates: start: 200907
  2. NEXIUM [Suspect]
     Indication: GASTROOESOPHAGEAL REFLUX DISEASE
     Route: 048
     Dates: start: 200907
  3. ALLEGRA [Concomitant]
  4. CALCIUM WITH MAGNESIUM [Concomitant]

REACTIONS (3)
  - Asthma [Unknown]
  - Eructation [Unknown]
  - Intentional product misuse [Unknown]
